FAERS Safety Report 5192708-8 (Version None)
Quarter: 2006Q4

REPORT INFORMATION
  Report Type: 
  Country: None (occurrence: None)
  Receive Date: 20061228
  Receipt Date: 20061219
  Transmission Date: 20070319
  Serious: Yes (Other)
  Sender: FDA-Public Use
  Company Number: PHRM2006FR03383

PATIENT
  Age: 73 Year
  Sex: Female

DRUGS (2)
  1. TAREG [Suspect]
     Indication: HYPERTENSION
     Dosage: 80 MG, QD
     Route: 048
     Dates: start: 20061101
  2. FEMARA [Concomitant]
     Indication: BREAST CANCER
     Route: 048
     Dates: start: 20050601

REACTIONS (2)
  - BLOOD PRESSURE INCREASED [None]
  - SCOTOMA [None]
